FAERS Safety Report 13878032 (Version 8)
Quarter: 2019Q3

REPORT INFORMATION
  Report Type: Spontaneous
  Country: US (occurrence: US)
  Receive Date: 20170817
  Receipt Date: 20190930
  Transmission Date: 20191004
  Serious: Yes (Hospitalization, Other)
  Sender: FDA-Public Use
  Company Number: US-ALEXION-A201709140

PATIENT
  Sex: Female

DRUGS (2)
  1. SOLIRIS [Suspect]
     Active Substance: ECULIZUMAB
     Indication: ATYPICAL HAEMOLYTIC URAEMIC SYNDROME
     Dosage: UNK
     Route: 042
  2. SOLIRIS [Suspect]
     Active Substance: ECULIZUMAB
     Dosage: UNK
     Route: 065

REACTIONS (10)
  - Malaise [Unknown]
  - Blood pressure fluctuation [Unknown]
  - Eating disorder [Unknown]
  - Nerve injury [Unknown]
  - Dehydration [Unknown]
  - Anaemia [Unknown]
  - Trigeminal neuralgia [Unknown]
  - Aphasia [Unknown]
  - Renal impairment [Unknown]
  - White blood cell count decreased [Unknown]
